FAERS Safety Report 11775044 (Version 4)
Quarter: 2018Q2

REPORT INFORMATION
  Report Type: Report from Study
  Country: US (occurrence: US)
  Receive Date: 20151124
  Receipt Date: 20180629
  Transmission Date: 20180711
  Serious: Yes (Death, Hospitalization)
  Sender: FDA-Public Use
  Company Number: US-ACTELION-A-US2015-123624

PATIENT
  Age: 70 Year
  Sex: Female
  Weight: 78.91 kg

DRUGS (4)
  1. OPSUMIT [Suspect]
     Active Substance: MACITENTAN
     Indication: PULMONARY ARTERIAL HYPERTENSION
     Dosage: 10 MG, QD
     Route: 048
     Dates: start: 20141119
  2. TYVASO [Suspect]
     Active Substance: TREPROSTINIL
     Indication: PRODUCT USED FOR UNKNOWN INDICATION
     Route: 055
  3. OPSUMIT [Suspect]
     Active Substance: MACITENTAN
     Dosage: 10 MG, QD
     Route: 048
  4. DILTIAZEM. [Concomitant]
     Active Substance: DILTIAZEM

REACTIONS (36)
  - Osteomyelitis [Unknown]
  - Fall [Unknown]
  - Contusion [Unknown]
  - Localised infection [Unknown]
  - Cough [Unknown]
  - Oropharyngeal pain [Unknown]
  - Headache [Unknown]
  - Nasopharyngitis [Unknown]
  - Rhinorrhoea [Unknown]
  - Pain in extremity [Unknown]
  - Gout [Not Recovered/Not Resolved]
  - Balance disorder [Unknown]
  - Ulcer [Unknown]
  - Fatigue [Unknown]
  - Blood iron decreased [Unknown]
  - Drug dose omission [Unknown]
  - Nausea [Unknown]
  - Ear infection [Unknown]
  - Weight increased [Unknown]
  - Stent placement [Unknown]
  - Pharyngitis streptococcal [Unknown]
  - Erythema [Unknown]
  - Dyspnoea [Unknown]
  - Nasal congestion [Unknown]
  - Arthritis [Not Recovered/Not Resolved]
  - Fluid retention [Unknown]
  - Limb discomfort [Unknown]
  - Death [Fatal]
  - Renal failure [Unknown]
  - Dizziness [Unknown]
  - Abdominal distension [Unknown]
  - Dry mouth [Unknown]
  - Eye pain [Unknown]
  - Constipation [Unknown]
  - Myositis [Unknown]
  - Tenderness [Unknown]

NARRATIVE: CASE EVENT DATE: 20180615
